FAERS Safety Report 6969041-4 (Version None)
Quarter: 2010Q3

REPORT INFORMATION
  Report Type: 
  Country: None (occurrence: None)
  Receive Date: 20100907
  Receipt Date: 20100830
  Transmission Date: 20110219
  Serious: Yes (Other)
  Sender: FDA-Public Use
  Company Number: US-AMGEN-KDL414939

PATIENT
  Sex: Male

DRUGS (1)
  1. ENBREL [Suspect]
     Indication: PSORIATIC ARTHROPATHY
     Route: 058
     Dates: start: 20021120

REACTIONS (3)
  - ANTINUCLEAR ANTIBODY POSITIVE [None]
  - DOUBLE STRANDED DNA ANTIBODY POSITIVE [None]
  - SYSTEMIC LUPUS ERYTHEMATOSUS [None]
